FAERS Safety Report 18775865 (Version 1)
Quarter: 2021Q1

REPORT INFORMATION
  Report Type: Spontaneous
  Country: GB (occurrence: GB)
  Receive Date: 20210122
  Receipt Date: 20210122
  Transmission Date: 20210419
  Serious: Yes (Disabling, Other)
  Sender: FDA-Public Use
  Company Number: GB-CELGENEUS-GBR-20210104557

PATIENT
  Age: 63 Year
  Sex: Male
  Weight: 91 kg

DRUGS (13)
  1. THALIDOMIDE [Suspect]
     Active Substance: THALIDOMIDE
     Indication: PLASMA CELL MYELOMA
     Route: 048
     Dates: start: 20201006, end: 20201215
  2. BORTEZOMIB. [Suspect]
     Active Substance: BORTEZOMIB
     Indication: PLASMA CELL MYELOMA
     Route: 058
     Dates: start: 20201006, end: 20201215
  3. DEXAMETHASONE. [Concomitant]
     Active Substance: DEXAMETHASONE
     Indication: ILL-DEFINED DISORDER
     Route: 065
  4. VITAMIN K [Concomitant]
     Active Substance: PHYTONADIONE
     Indication: ILL-DEFINED DISORDER
     Route: 065
  5. RIVAROXABAN [Concomitant]
     Active Substance: RIVAROXABAN
     Indication: ILL-DEFINED DISORDER
     Route: 065
  6. ZOLEDRONIC ACID [Concomitant]
     Active Substance: ZOLEDRONIC ACID
     Indication: ILL-DEFINED DISORDER
     Route: 065
  7. CALCIUM AND VITAMIN D3 [Concomitant]
     Active Substance: CALCIUM\CHOLECALCIFEROL
     Indication: ILL-DEFINED DISORDER
     Route: 065
  8. COTRIMOXAZOLE [Concomitant]
     Active Substance: SULFAMETHOXAZOLE\TRIMETHOPRIM
     Indication: ILL-DEFINED DISORDER
     Route: 065
  9. LANSOPRAZOLE. [Concomitant]
     Active Substance: LANSOPRAZOLE
     Indication: ILL-DEFINED DISORDER
     Route: 065
  10. THALIDOMIDE [Suspect]
     Active Substance: THALIDOMIDE
     Indication: PLASMA CELL MYELOMA
  11. ACICLOVIR [Concomitant]
     Active Substance: ACYCLOVIR
     Indication: ILL-DEFINED DISORDER
     Route: 065
  12. ZINC. [Concomitant]
     Active Substance: ZINC
     Indication: ILL-DEFINED DISORDER
     Route: 065
  13. FLAX SEED [Concomitant]
     Active Substance: FLAX SEED
     Indication: ILL-DEFINED DISORDER
     Route: 065

REACTIONS (2)
  - Atrial fibrillation [Not Recovered/Not Resolved]
  - Cardiac failure acute [Recovering/Resolving]

NARRATIVE: CASE EVENT DATE: 20201215
